FAERS Safety Report 15874783 (Version 2)
Quarter: 2020Q1

REPORT INFORMATION
  Report Type: Other
  Country: US (occurrence: US)
  Receive Date: 20190126
  Receipt Date: 20200126
  Transmission Date: 20200409
  Serious: No
  Sender: FDA-Public Use
  Company Number: US-ACORDA-ACO_152589_2018

PATIENT
  Age: 67 Year
  Sex: Male

DRUGS (13)
  1. AMPYRA [Suspect]
     Active Substance: DALFAMPRIDINE
     Indication: MULTIPLE SCLEROSIS
     Dosage: 10 MG, BID
     Route: 048
     Dates: start: 20101202
  2. BACLOFEN. [Concomitant]
     Active Substance: BACLOFEN
     Indication: MUSCLE SPASTICITY
     Dosage: 10 MG, PRN
     Route: 048
     Dates: start: 2008, end: 2018
  3. OMEGA 3 [Concomitant]
     Active Substance: OMEGA-3 FATTY ACIDS
     Indication: PRODUCT USED FOR UNKNOWN INDICATION
     Dosage: 1000 MILLIGRAM
     Route: 065
  4. CLONAZEPAM. [Concomitant]
     Active Substance: CLONAZEPAM
     Dosage: 0.125 MG RAPDIS
     Route: 065
  5. VITAMIN D3 [Concomitant]
     Active Substance: CHOLECALCIFEROL
     Indication: PRODUCT USED FOR UNKNOWN INDICATION
     Dosage: 2000 UNIT
     Route: 065
  6. DALFAMPRIDINE. [Suspect]
     Active Substance: DALFAMPRIDINE
     Indication: MULTIPLE SCLEROSIS
     Dosage: 10 MILLIGRAM, BID
     Route: 065
  7. DALFAMPRIDINE. [Suspect]
     Active Substance: DALFAMPRIDINE
     Indication: GAIT DISTURBANCE
  8. CIALIS [Concomitant]
     Active Substance: TADALAFIL
     Indication: ERECTILE DYSFUNCTION
     Dosage: 5 MG, BID
     Route: 048
     Dates: start: 2015, end: 2018
  9. CLONAZEPAM. [Concomitant]
     Active Substance: CLONAZEPAM
     Indication: MUSCLE SPASTICITY
     Dosage: 0.5 UNK, TWO AT BED
     Route: 048
     Dates: start: 2011, end: 2018
  10. LEVOCARNITINE. [Concomitant]
     Active Substance: LEVOCARNITINE
     Indication: PRODUCT USED FOR UNKNOWN INDICATION
     Dosage: 250 MG, QD
     Route: 048
     Dates: start: 2013, end: 2018
  11. TECFIDERA [Concomitant]
     Active Substance: DIMETHYL FUMARATE
     Indication: MULTIPLE SCLEROSIS
     Dosage: 240 MG, BID
     Route: 048
     Dates: start: 2013, end: 2018
  12. DIAZEPAM. [Concomitant]
     Active Substance: DIAZEPAM
     Indication: ANXIETY
     Dosage: 5 MG, PRN
     Route: 048
     Dates: start: 2008, end: 2018
  13. COENZYME Q10 [Concomitant]
     Active Substance: UBIDECARENONE
     Indication: PRODUCT USED FOR UNKNOWN INDICATION
     Dosage: 100 MILLIGRAM
     Route: 065

REACTIONS (2)
  - Ill-defined disorder [Unknown]
  - Trigeminal neuralgia [Recovering/Resolving]

NARRATIVE: CASE EVENT DATE: 201806
